FAERS Safety Report 9922737 (Version 1)
Quarter: 2014Q1

REPORT INFORMATION
  Report Type: Spontaneous
  Country: IN (occurrence: IN)
  Receive Date: 20140225
  Receipt Date: 20140225
  Transmission Date: 20141002
  Serious: Yes (Life-Threatening)
  Sender: FDA-Public Use
  Company Number: IN-009507513-1402IND010818

PATIENT
  Age: 44 Year
  Sex: Female
  Weight: 51 kg

DRUGS (2)
  1. JANUVIA [Suspect]
     Indication: DIABETES MELLITUS
     Dosage: DOSE 1
  2. INSULIN MIXTARD 30 HM [Suspect]
     Indication: DIABETES MELLITUS
     Dosage: STRENGTH- 14U MOR, 10U EVEN

REACTIONS (1)
  - Hypoglycaemia [Not Recovered/Not Resolved]
